FAERS Safety Report 7980663-4 (Version None)
Quarter: 2011Q4

REPORT INFORMATION
  Report Type: 
  Country: None (occurrence: None)
  Receive Date: 20111214
  Receipt Date: 20111208
  Transmission Date: 20120403
  Serious: Yes (Hospitalization)
  Sender: FDA-Public Use
  Company Number: FR-PFIZER INC-2011299343

PATIENT
  Age: 30 Year
  Sex: Male

DRUGS (7)
  1. ZYVOX [Suspect]
     Indication: BACTERIAL INFECTION
     Dosage: 600 MG, 2X/DAY
     Dates: start: 20110720, end: 20110725
  2. ORBENIN CAP [Suspect]
     Indication: STAPHYLOCOCCAL INFECTION
     Dosage: UNK
     Route: 042
     Dates: start: 20110725, end: 20110730
  3. OFLOXACIN [Suspect]
     Indication: STAPHYLOCOCCAL INFECTION
     Dosage: UNK
     Route: 048
     Dates: start: 20110730, end: 20110803
  4. RIFADIN [Suspect]
     Indication: STAPHYLOCOCCAL INFECTION
     Dosage: UNK
     Route: 048
     Dates: start: 20110725, end: 20110803
  5. CLINDAMYCIN HCL [Suspect]
     Indication: BACTERIAL INFECTION
     Dosage: 600 MG, 3X/DAY
     Dates: start: 20110720, end: 20110725
  6. HALDOL [Concomitant]
     Route: 048
  7. TERCIAN [Concomitant]
     Route: 048

REACTIONS (1)
  - PSYCHIATRIC DECOMPENSATION [None]
